FAERS Safety Report 6311731-0 (Version None)
Quarter: 2009Q3

REPORT INFORMATION
  Report Type: 
  Country: None (occurrence: None)
  Receive Date: 20090817
  Receipt Date: 20090811
  Transmission Date: 20100115
  Serious: Yes (Other)
  Sender: FDA-Public Use
  Company Number: US-AVENTIS-200912822US

PATIENT
  Sex: Male

DRUGS (21)
  1. LANTUS [Suspect]
     Dosage: DOSE: UNK
     Route: 058
  2. LANTUS [Suspect]
     Route: 058
  3. LANTUS [Suspect]
     Dosage: DOSE: 35 U
     Route: 058
  4. OPTICLIK (INSULIN INJECTION PEN) [Suspect]
     Dosage: DOSE: UNK
     Dates: start: 20060101
  5. VENTOLIN [Concomitant]
     Dosage: DOSE: 2 PUFFS EVERY 4-6 HOURS
  6. FLOVENT [Concomitant]
     Dosage: DOSE: 2 PUFFS
  7. ASACOL [Concomitant]
  8. NEXIUM [Concomitant]
  9. SIMVASTATIN [Concomitant]
  10. MULTI-VITAMINS [Concomitant]
     Dosage: DOSE: 1 TAB
  11. ISOSORBIDE [Concomitant]
  12. FOLIC ACID [Concomitant]
  13. QUINAPRIL [Concomitant]
  14. FUROSEMIDE [Concomitant]
  15. SPIRONOLACTONE [Concomitant]
  16. COREG [Concomitant]
  17. GLYBURIDE [Concomitant]
  18. FISH OIL [Concomitant]
     Dosage: DOSE: 2 CAPS
  19. LORTADINE [Concomitant]
  20. FERREX [Concomitant]
  21. ASPIRIN [Concomitant]
     Dosage: DOSE: 1 TAB

REACTIONS (5)
  - BLINDNESS TRANSIENT [None]
  - INJECTION SITE HAEMATOMA [None]
  - INJECTION SITE PAIN [None]
  - ORAL HERPES [None]
  - VISUAL IMPAIRMENT [None]
